FAERS Safety Report 19710703 (Version 4)
Quarter: 2021Q4

REPORT INFORMATION
  Report Type: Spontaneous
  Country: CZ (occurrence: CZ)
  Receive Date: 20210817
  Receipt Date: 20211102
  Transmission Date: 20220304
  Serious: Yes (Hospitalization, Other)
  Sender: FDA-Public Use
  Company Number: CZ-ALLERGAN-2128479US

PATIENT
  Sex: Female

DRUGS (10)
  1. ESCITALOPRAM OXALATE [Suspect]
     Active Substance: ESCITALOPRAM OXALATE
     Indication: Multimorbidity
     Dosage: 10 MILLIGRAM
     Route: 065
  2. ESCITALOPRAM OXALATE [Suspect]
     Active Substance: ESCITALOPRAM OXALATE
     Indication: Attention deficit hyperactivity disorder
  3. ARIPIPRAZOLE [Suspect]
     Active Substance: ARIPIPRAZOLE
     Indication: Multimorbidity
     Dosage: 15 MG, QD
     Route: 065
  4. ARIPIPRAZOLE [Suspect]
     Active Substance: ARIPIPRAZOLE
     Indication: Attention deficit hyperactivity disorder
  5. AGOMELATINE [Suspect]
     Active Substance: AGOMELATINE
     Indication: Affective disorder
     Dosage: DOSES 25-50 MG
     Route: 065
  6. OLANZAPINE [Suspect]
     Active Substance: OLANZAPINE
     Indication: Multimorbidity
     Dosage: 20 MILLIGRAM
     Route: 065
  7. OLANZAPINE [Suspect]
     Active Substance: OLANZAPINE
     Indication: Attention deficit hyperactivity disorder
  8. QUETIAPINE [Suspect]
     Active Substance: QUETIAPINE
     Indication: Attention deficit hyperactivity disorder
     Dosage: QUETIAPINE PROLONG 400 MG
     Route: 065
  9. QUETIAPINE [Suspect]
     Active Substance: QUETIAPINE
     Indication: Multimorbidity
  10. PREGABALIN [Suspect]
     Active Substance: PREGABALIN
     Indication: Product used for unknown indication
     Dosage: 150 MG / DAY
     Route: 065

REACTIONS (20)
  - Behaviour disorder [Recovered/Resolved]
  - Schizoaffective disorder [Unknown]
  - Psychiatric decompensation [Unknown]
  - Hallucination, auditory [Recovered/Resolved]
  - Delusion [Recovered/Resolved]
  - Type 2 diabetes mellitus [Recovering/Resolving]
  - Sedation [Unknown]
  - Central obesity [Recovering/Resolving]
  - Irritability [Recovered/Resolved]
  - Sleep deficit [Recovered/Resolved]
  - Somnolence [Recovered/Resolved]
  - Accelerated hypertension [Recovered/Resolved]
  - Asthenia [Recovered/Resolved]
  - Akathisia [Recovered/Resolved]
  - Euphoric mood [Recovered/Resolved]
  - Dysphoria [Recovered/Resolved]
  - Weight increased [Recovering/Resolving]
  - Drug ineffective [Unknown]
  - Therapeutic product effect incomplete [Unknown]
  - Product use in unapproved indication [Unknown]
